FAERS Safety Report 10013909 (Version 1)
Quarter: 2014Q1

REPORT INFORMATION
  Report Type: Spontaneous
  Country: NL (occurrence: NL)
  Receive Date: 20140316
  Receipt Date: 20140316
  Transmission Date: 20141002
  Serious: Yes (Other)
  Sender: FDA-Public Use
  Company Number: NL-JNJFOC-20140305552

PATIENT
  Age: 83 Year
  Sex: Male

DRUGS (1)
  1. IMODIUM [Suspect]
     Indication: DIARRHOEA
     Route: 048

REACTIONS (2)
  - Syncope [Recovered/Resolved]
  - Feeling abnormal [Recovered/Resolved]
